FAERS Safety Report 9620379 (Version 2)
Quarter: 2013Q4

REPORT INFORMATION
  Report Type: Spontaneous
  Country: FR (occurrence: FR)
  Receive Date: 20131015
  Receipt Date: 20131024
  Transmission Date: 20140711
  Serious: No
  Sender: FDA-Public Use
  Company Number: FR-ROCHE-1287700

PATIENT
  Age: 72 Year
  Sex: Male

DRUGS (2)
  1. ZELBORAF [Suspect]
     Indication: PRODUCT USED FOR UNKNOWN INDICATION
     Route: 048
     Dates: start: 20130826, end: 201309
  2. ZELBORAF [Suspect]
     Route: 048
     Dates: start: 201309

REACTIONS (2)
  - Skin hyperpigmentation [Not Recovered/Not Resolved]
  - Photosensitivity reaction [Not Recovered/Not Resolved]
